FAERS Safety Report 11527353 (Version 1)
Quarter: 2015Q3

REPORT INFORMATION
  Report Type: Report from Study
  Country: US (occurrence: US)
  Receive Date: 20150920
  Receipt Date: 20150920
  Transmission Date: 20151125
  Serious: No
  Sender: FDA-Public Use
  Company Number: PHEH2015US011164

PATIENT
  Sex: Male
  Weight: 97.72 kg

DRUGS (3)
  1. ILARIS [Suspect]
     Active Substance: CANAKINUMAB
     Dosage: 150 MG, QW4
     Route: 058
  2. ILARIS [Suspect]
     Active Substance: CANAKINUMAB
     Dosage: 150 MG, QW4
     Route: 058
     Dates: start: 20150415, end: 20150415
  3. ILARIS [Suspect]
     Active Substance: CANAKINUMAB
     Indication: CRYOPYRIN ASSOCIATED PERIODIC SYNDROME
     Dosage: UNK
     Route: 058
     Dates: start: 20111226

REACTIONS (6)
  - Erythema [Unknown]
  - Back pain [Unknown]
  - Pain [Unknown]
  - Nephrolithiasis [Unknown]
  - Drug ineffective [Unknown]
  - Malaise [Unknown]
